FAERS Safety Report 20657538 (Version 1)
Quarter: 2022Q1

REPORT INFORMATION
  Report Type: Spontaneous
  Country: CA (occurrence: CA)
  Receive Date: 20220331
  Receipt Date: 20220331
  Transmission Date: 20220423
  Serious: Yes (Hospitalization)
  Sender: FDA-Public Use
  Company Number: CA-TEVA-2022-CA-2022045

PATIENT
  Age: 94 Year
  Sex: Female

DRUGS (4)
  1. PANTOPRAZOLE [Suspect]
     Active Substance: PANTOPRAZOLE
     Indication: Product used for unknown indication
     Route: 065
  2. AMOXICILLIN [Concomitant]
     Active Substance: AMOXICILLIN
     Indication: Influenza like illness
     Dosage: 1500 MILLIGRAM DAILY;
     Route: 048
  3. NORFLOXACIN [Concomitant]
     Active Substance: NORFLOXACIN
     Indication: Urinary tract infection
     Dosage: 800 MILLIGRAM DAILY;
     Route: 048
  4. PREDNISONE [Concomitant]
     Active Substance: PREDNISONE
     Indication: Polymyalgia rheumatica
     Dosage: 1 MILLIGRAM DAILY;
     Route: 048

REACTIONS (3)
  - Creatinine urine increased [Recovered/Resolved]
  - Eosinophils urine present [Recovered/Resolved]
  - Tubulointerstitial nephritis [Recovered/Resolved]
